FAERS Safety Report 10086009 (Version 2)
Quarter: 2014Q2

REPORT INFORMATION
  Report Type: Spontaneous
  Country: US (occurrence: US)
  Receive Date: 20140418
  Receipt Date: 20140509
  Transmission Date: 20141212
  Serious: Yes (Hospitalization)
  Sender: FDA-Public Use
  Company Number: PHEH2014US007588

PATIENT
  Age: 61 Year
  Sex: Female

DRUGS (7)
  1. GILENYA [Suspect]
     Indication: RELAPSING-REMITTING MULTIPLE SCLEROSIS
     Dosage: 0.5 MG, QD
     Route: 048
     Dates: start: 201211
  2. VISTARIL [Concomitant]
     Indication: NAUSEA
     Dosage: 50 MG, PRN
     Route: 048
  3. NUVIGIL [Concomitant]
     Indication: FATIGUE
     Dosage: 150 MG, QD
     Route: 048
  4. MOBIC [Concomitant]
     Indication: OSTEOARTHRITIS
     Dosage: 15 MG, QD
     Route: 048
  5. VITAMIN D [Concomitant]
     Indication: VITAMIN D DEFICIENCY
     Dosage: 4000 IU, QD
     Route: 048
  6. ACTONEL [Concomitant]
     Indication: OSTEOPOROSIS
  7. IMITREX [Concomitant]
     Indication: MIGRAINE
     Dosage: 100 MG, PRN
     Route: 048

REACTIONS (6)
  - Pulmonary embolism [Recovered/Resolved]
  - Thrombosis [Unknown]
  - Chest pain [Unknown]
  - Dizziness [Unknown]
  - Brain natriuretic peptide increased [Unknown]
  - Activated partial thromboplastin time prolonged [Unknown]
